FAERS Safety Report 23307853 (Version 1)
Quarter: 2023Q4

REPORT INFORMATION
  Report Type: Report from Study
  Country: CO (occurrence: CO)
  Receive Date: 20231218
  Receipt Date: 20231218
  Transmission Date: 20240110
  Serious: Yes (Hospitalization, Other)
  Sender: FDA-Public Use
  Company Number: CO-002147023-PHHY2017CO108168

PATIENT

DRUGS (11)
  1. RUXOLITINIB [Suspect]
     Active Substance: RUXOLITINIB
     Indication: Polycythaemia vera
     Dosage: 5 MG, QD
     Route: 048
     Dates: start: 20170228
  2. RUXOLITINIB [Suspect]
     Active Substance: RUXOLITINIB
     Dosage: 10 MG, BID
     Route: 048
  3. RUXOLITINIB [Suspect]
     Active Substance: RUXOLITINIB
     Dosage: 10 MG, Q8H (2 TABLETS OF 5 MG EVERY 8 HOURS, 10 MG EVERY 8 HOURS)
     Route: 048
  4. RUXOLITINIB [Suspect]
     Active Substance: RUXOLITINIB
     Dosage: 30 MG, QD
     Route: 048
  5. RUXOLITINIB [Suspect]
     Active Substance: RUXOLITINIB
     Dosage: 20 MG, Q12H (EVERY 12 HOURS)
     Route: 048
     Dates: start: 20170321
  6. RUXOLITINIB [Suspect]
     Active Substance: RUXOLITINIB
     Dosage: 20 MG, BID
     Route: 048
     Dates: start: 202309
  7. RUXOLITINIB [Suspect]
     Active Substance: RUXOLITINIB
     Dosage: 20 MG, BID
     Route: 048
     Dates: end: 20230918
  8. RUXOLITINIB [Suspect]
     Active Substance: RUXOLITINIB
     Dosage: UNK (AT 8AM AND 8PM)
     Route: 065
  9. LOSARTAN [Concomitant]
     Active Substance: LOSARTAN
     Indication: Product used for unknown indication
     Dosage: UNK, QD
     Route: 048
  10. CARBIDOL [Concomitant]
     Indication: Product used for unknown indication
     Dosage: UNK, QD
     Route: 048
  11. ASCORBIC ACID [Concomitant]
     Active Substance: ASCORBIC ACID
     Indication: Product used for unknown indication
     Dosage: UNK, QD
     Route: 048

REACTIONS (17)
  - Blood pressure increased [Unknown]
  - Haemoglobin increased [Unknown]
  - Tongue discolouration [Unknown]
  - Product dose omission issue [Unknown]
  - Hypoaesthesia [Unknown]
  - Product prescribing error [Unknown]
  - Oral mucosal erythema [Unknown]
  - Mouth haemorrhage [Unknown]
  - Epistaxis [Recovered/Resolved]
  - Blood disorder [Unknown]
  - Haemorrhage [Unknown]
  - Choking [Unknown]
  - Swollen tongue [Not Recovered/Not Resolved]
  - Peripheral swelling [Unknown]
  - Thrombosis [Unknown]
  - Tongue erythema [Not Recovered/Not Resolved]
  - Anxiety [Unknown]

NARRATIVE: CASE EVENT DATE: 20170719
